FAERS Safety Report 10577321 (Version 2)
Quarter: 2014Q4

REPORT INFORMATION
  Report Type: Spontaneous
  Country: IT (occurrence: IT)
  Receive Date: 20141111
  Receipt Date: 20141111
  Transmission Date: 20150529
  Serious: Yes (Other)
  Sender: FDA-Public Use
  Company Number: IT-BAYER-2014-146990

PATIENT
  Age: 46 Year
  Sex: Female
  Weight: 168 kg

DRUGS (2)
  1. STIVARGA [Suspect]
     Active Substance: REGORAFENIB
     Indication: COLON CANCER
     Dosage: UNK
     Dates: start: 20140902
  2. STIVARGA [Suspect]
     Active Substance: REGORAFENIB
     Indication: COLON CANCER
     Dosage: UNK
     Dates: start: 20140920

REACTIONS (3)
  - Blood thyroid stimulating hormone increased [Recovered/Resolved]
  - Blood bilirubin increased [Recovered/Resolved]
  - Blood bilirubin increased [Recovered/Resolved]

NARRATIVE: CASE EVENT DATE: 20140909
